FAERS Safety Report 9373776 (Version 5)
Quarter: 2014Q1

REPORT INFORMATION
  Report Type: Report from Study
  Country: US (occurrence: US)
  Receive Date: 20130628
  Receipt Date: 20140128
  Transmission Date: 20141002
  Serious: Yes (Other)
  Sender: FDA-Public Use
  Company Number: US-ROCHE-1241921

PATIENT
  Sex: Female
  Weight: 108.51 kg

DRUGS (15)
  1. XOLAIR [Suspect]
     Indication: ASTHMA
     Dosage: LAST DOSE ADMINISTRATION ON 28/MAY/2013
     Route: 065
  2. VITAMIN D2 [Concomitant]
     Route: 048
  3. LEXAPRO [Concomitant]
     Indication: DEPRESSION
     Route: 048
  4. THYROX [Concomitant]
     Indication: THYROID DISORDER
     Route: 048
  5. SINGULAIR [Concomitant]
     Indication: ASTHMA
     Route: 048
     Dates: start: 20130305
  6. TURMERIC [Concomitant]
     Indication: DEPRESSION
     Route: 048
  7. ALBUTEROL [Concomitant]
  8. CLONAZEPAM [Concomitant]
     Indication: CONVULSION
     Route: 048
  9. VENTOLIN HFA [Concomitant]
     Indication: ASTHMA
     Route: 055
  10. QVAR [Concomitant]
     Indication: HYPERSENSITIVITY
     Route: 042
  11. VENTOLIN [Concomitant]
     Indication: ASTHMA
     Route: 065
  12. KEPPRA [Concomitant]
     Indication: CONVULSION
     Route: 048
  13. TOPAMAX [Concomitant]
     Indication: CONVULSION
     Route: 048
  14. CELEBREX [Concomitant]
     Indication: PAIN
     Route: 048
  15. COMBIVENT [Concomitant]
     Indication: ASTHMA
     Dosage: 1 PUFF
     Route: 065

REACTIONS (2)
  - Anaphylactic reaction [Unknown]
  - Poor venous access [Unknown]
